FAERS Safety Report 8608324-9 (Version None)
Quarter: 2012Q3

REPORT INFORMATION
  Report Type: 
  Country: None (occurrence: None)
  Receive Date: 20120821
  Receipt Date: 20120815
  Transmission Date: 20120928
  Serious: Yes (Other)
  Sender: FDA-Public Use
  Company Number: BR-SANOFI-AVENTIS-2012SA058902

PATIENT
  Sex: Female

DRUGS (2)
  1. METHOTREXATE [Suspect]
     Indication: RHEUMATOID ARTHRITIS
     Route: 065
  2. ARAVA [Suspect]
     Indication: RHEUMATOID ARTHRITIS
     Route: 065

REACTIONS (1)
  - HEPATOTOXICITY [None]
